FAERS Safety Report 7693009-6 (Version None)
Quarter: 2011Q3

REPORT INFORMATION
  Report Type: 
  Country: None (occurrence: None)
  Receive Date: 20110815
  Receipt Date: 20110804
  Transmission Date: 20111222
  Serious: Yes (Other)
  Sender: FDA-Public Use
  Company Number: DSA_47370_2011

PATIENT
  Sex: Female

DRUGS (2)
  1. VOXRA (VOXRA - BUPROPION HYDROCHLORIDE) (NOT SPECIFIED) [Suspect]
     Indication: PSYCHOMOTOR HYPERACTIVITY
     Dosage: 300, 150  MG QD, ORAL
     Route: 048
  2. VOXRA (VOXRA - BUPROPION HYDROCHLORIDE) (NOT SPECIFIED) [Suspect]
     Indication: ATTENTION DEFICIT/HYPERACTIVITY DISORDER
     Dosage: 300, 150  MG QD, ORAL
     Route: 048

REACTIONS (7)
  - RASH PRURITIC [None]
  - MALAISE [None]
  - TACHYCARDIA [None]
  - BLISTER [None]
  - URTICARIA [None]
  - PALPITATIONS [None]
  - DIARRHOEA [None]
